FAERS Safety Report 8791344 (Version 2)
Quarter: 2012Q4

REPORT INFORMATION
  Report Type: Other
  Country: US (occurrence: None)
  Receive Date: 20120911
  Receipt Date: 20121003
  Transmission Date: 20130627
  Serious: Yes (Hospitalization)
  Sender: FDA-Public Use
  Company Number: 2012-451

PATIENT
  Age: 34 Year
  Sex: Male

DRUGS (12)
  1. PRIALT [Suspect]
     Indication: PAIN MANAGEMENT
     Dosage: 0.05 mcg, once/hour, Intrathecal
     Route: 037
     Dates: start: 20120612, end: 20120712
  2. PRIALT [Suspect]
     Indication: PAIN MANAGEMENT
     Dosage: 0.054 mcg, once/hour, Intrathecal
     Route: 037
     Dates: start: 20120712, end: 201208
  3. PRIALT [Suspect]
     Indication: PAIN MANAGEMENT
     Dosage: 0.063 mcg, once/hour, Intrathecal
     Route: 037
     Dates: start: 201208
  4. PRIALT [Suspect]
     Indication: PAIN MANAGEMENT
     Route: 037
     Dates: start: 201209
  5. DILAUDID (HYDROMORPHONE HYDROCHLORIDE) [Concomitant]
  6. ELAVIL (AMITRIPTYLINE HYDROCHLORIDE) [Concomitant]
  7. MIRAPEX (PRAMIPEXOLE DIHYDROCHLORIDE) [Concomitant]
  8. RITALIN (METHYLPHENIDATE HYDROCHLORIDE) [Concomitant]
  9. FLEXERIL (CYCLOBENZAPRINE HYDROCHLORIDE) [Concomitant]
  10. VALIUM (DIAZEPAM) [Concomitant]
  11. XANAX (ALPRAZOLAM) [Concomitant]
  12. AMBIEN (ZOLPIDERM TARTRATE) [Concomitant]

REACTIONS (5)
  - Dehydration [None]
  - Anxiety [None]
  - Panic attack [None]
  - Insomnia [None]
  - Condition aggravated [None]
